FAERS Safety Report 11641662 (Version 4)
Quarter: 2017Q3

REPORT INFORMATION
  Report Type: Spontaneous
  Country: IT (occurrence: JP)
  Receive Date: 20151019
  Receipt Date: 20170712
  Transmission Date: 20171127
  Serious: Yes (Hospitalization, Other)
  Sender: FDA-Public Use
  Company Number: IT-SIGMA-TAU US-2015STPI000664

PATIENT
  Age: 52 Year
  Sex: Male

DRUGS (9)
  1. ADALAT 2-PHASEN [Concomitant]
     Active Substance: NIFEDIPINE
  2. CYCLOPHOSPHAMIDE. [Concomitant]
     Active Substance: CYCLOPHOSPHAMIDE
     Indication: LYMPHOMA
  3. RITUXIMAB. [Concomitant]
     Active Substance: RITUXIMAB
     Indication: LYMPHOMA
  4. PREDNISOLONE. [Concomitant]
     Active Substance: PREDNISOLONE
     Indication: LYMPHOMA
  5. LEVOCARNITINE. [Suspect]
     Active Substance: LEVOCARNITINE
     Indication: HEPATIC ENCEPHALOPATHY PROPHYLAXIS
     Dosage: 3000 MG, X1
     Route: 042
     Dates: start: 20140903, end: 20140903
  6. LEVOCARNITINE. [Suspect]
     Active Substance: LEVOCARNITINE
     Dosage: UNK
     Route: 042
     Dates: start: 20140905, end: 20140905
  7. LEVOCARNITINE. [Suspect]
     Active Substance: LEVOCARNITINE
     Dosage: 6000 MG, X1
     Route: 042
     Dates: start: 20140904, end: 20140904
  8. DOXORUBICIN [Concomitant]
     Active Substance: DOXORUBICIN
     Indication: LYMPHOMA
  9. VINCRISTINE [Concomitant]
     Active Substance: VINCRISTINE
     Indication: LYMPHOMA

REACTIONS (1)
  - Pancreatitis [Recovering/Resolving]

NARRATIVE: CASE EVENT DATE: 20140904
